FAERS Safety Report 11914054 (Version 1)
Quarter: 2016Q1

REPORT INFORMATION
  Report Type: Spontaneous
  Country: US (occurrence: US)
  Receive Date: 20160113
  Receipt Date: 20160113
  Transmission Date: 20160526
  Serious: No
  Sender: FDA-Public Use
  Company Number: US-009507513-1601USA001371

PATIENT
  Age: 90 Year
  Sex: Female

DRUGS (5)
  1. JANUVIA [Suspect]
     Active Substance: SITAGLIPTIN PHOSPHATE
     Route: 048
  2. IBRANCE [Interacting]
     Active Substance: PALBOCICLIB
  3. METFORMIN [Interacting]
     Active Substance: METFORMIN HYDROCHLORIDE
  4. GLIMEPIRIDE. [Interacting]
     Active Substance: GLIMEPIRIDE
  5. ABRAXANE [Interacting]
     Active Substance: PACLITAXEL

REACTIONS (3)
  - Fatigue [Unknown]
  - Drug interaction [Unknown]
  - Blood glucose abnormal [Unknown]
